FAERS Safety Report 4524949-4 (Version None)
Quarter: 2004Q4

REPORT INFORMATION
  Report Type: 
  Country: None (occurrence: None)
  Receive Date: 20041213
  Receipt Date: 20040302
  Transmission Date: 20050328
  Serious: Yes (Hospitalization)
  Sender: FDA-Public Use
  Company Number: US-AMGEN-KDL068278

PATIENT
  Sex: Male

DRUGS (12)
  1. PROCRIT [Suspect]
     Indication: DIALYSIS
     Route: 058
     Dates: start: 20010101
  2. LASIX [Concomitant]
  3. DIGOXIN [Concomitant]
  4. HUMULIN [Concomitant]
  5. ZOCOR [Concomitant]
  6. ASPIRIN [Concomitant]
  7. PREDNISONE [Concomitant]
  8. ACIPHEX [Concomitant]
  9. FLONASE [Concomitant]
  10. SUCRALFATE [Concomitant]
  11. ALBUTEROL [Concomitant]
  12. HYDRALAZINE HCL [Concomitant]

REACTIONS (5)
  - DIZZINESS [None]
  - FALL [None]
  - GASTROINTESTINAL HAEMORRHAGE [None]
  - SERUM FERRITIN DECREASED [None]
  - THERAPEUTIC RESPONSE DECREASED [None]
